FAERS Safety Report 14987886 (Version 1)
Quarter: 2018Q2

REPORT INFORMATION
  Report Type: Spontaneous
  Country: TW (occurrence: TW)
  Receive Date: 20180608
  Receipt Date: 20180608
  Transmission Date: 20180711
  Serious: Yes (Hospitalization)
  Sender: FDA-Public Use
  Company Number: TW-BAYER-2018-108718

PATIENT
  Age: 45 Year
  Sex: Male

DRUGS (2)
  1. AMOXICILINA + CLAVULANICO [Suspect]
     Active Substance: AMOXICILLIN\CLAVULANIC ACID
  2. ASPIRIN. [Suspect]
     Active Substance: ASPIRIN

REACTIONS (1)
  - Toxic epidermal necrolysis [None]
